FAERS Safety Report 5076053-7 (Version None)
Quarter: 2006Q3

REPORT INFORMATION
  Report Type: 
  Country: None (occurrence: None)
  Receive Date: 20060725
  Receipt Date: 20060317
  Transmission Date: 20061208
  Serious: No
  Sender: FDA-Public Use
  Company Number: 200612304BWH

PATIENT
  Sex: Female
  Weight: 49.8957 kg

DRUGS (8)
  1. NEXAVAR [Suspect]
     Indication: RENAL CELL CARCINOMA STAGE UNSPECIFIED
     Dosage: 400 MG, BID, ORAL
     Route: 048
     Dates: start: 20060310
  2. LUNESTA [Concomitant]
  3. LACTULOSE [Concomitant]
  4. LYRICA [Concomitant]
  5. SPIRONOLACTONE [Concomitant]
  6. CELEBREX [Concomitant]
  7. HYDROMORPHONE HCL [Concomitant]
  8. METHADONE HCL [Concomitant]

REACTIONS (1)
  - URINARY INCONTINENCE [None]
